FAERS Safety Report 14100632 (Version 1)
Quarter: 2017Q4

REPORT INFORMATION
  Report Type: Spontaneous
  Country: KW (occurrence: KW)
  Receive Date: 20171017
  Receipt Date: 20171017
  Transmission Date: 20180321
  Serious: Yes (Other)
  Sender: FDA-Public Use
  Company Number: PHHY2017KW152329

PATIENT
  Sex: Female

DRUGS (1)
  1. COSENTYX [Suspect]
     Active Substance: SECUKINUMAB
     Indication: PSORIASIS
     Dosage: 300 MG, QMO
     Route: 058
     Dates: start: 20171010

REACTIONS (4)
  - Rash [Unknown]
  - Influenza like illness [Recovering/Resolving]
  - Inappropriate schedule of drug administration [Unknown]
  - Angioedema [Unknown]

NARRATIVE: CASE EVENT DATE: 20171010
